FAERS Safety Report 6242400-3 (Version None)
Quarter: 2009Q2

REPORT INFORMATION
  Report Type: 
  Country: None (occurrence: None)
  Receive Date: 20090622
  Receipt Date: 20090622
  Transmission Date: 20091009
  Serious: No
  Sender: FDA-Public Use
  Company Number: None

PATIENT
  Sex: Female
  Weight: 64.4108 kg

DRUGS (1)
  1. ZICAM NASAL SWABS [Suspect]
     Indication: SINUSITIS
     Dosage: 1 SWAB EACH NOSTRIL. 2 X DAILY- NASAL
     Route: 045
     Dates: start: 20050615, end: 20050621

REACTIONS (4)
  - ANOSMIA [None]
  - CONDITION AGGRAVATED [None]
  - DYSPNOEA [None]
  - SINUSITIS [None]
